FAERS Safety Report 4971833-8 (Version None)
Quarter: 2006Q2

REPORT INFORMATION
  Report Type: 
  Country: None (occurrence: None)
  Receive Date: 20060412
  Receipt Date: 20060412
  Transmission Date: 20061013
  Serious: Yes (Hospitalization)
  Sender: FDA-Public Use
  Company Number: None

PATIENT
  Sex: Male
  Weight: 88.6 kg

DRUGS (6)
  1. INNOHEP [Suspect]
     Indication: GLIOBLASTOMA MULTIFORME
     Dosage: 4500 IU SC QAM
     Route: 058
     Dates: start: 20051109, end: 20060310
  2. INNOHEP [Suspect]
     Indication: GLIOBLASTOMA MULTIFORME
     Dosage: 4500 IU SC QAM
     Route: 058
     Dates: start: 20060401
  3. DECADRON [Concomitant]
  4. MULTI-VITAMIN [Concomitant]
  5. DILANTIN [Concomitant]
  6. GLIADEL [Concomitant]

REACTIONS (8)
  - ANXIETY [None]
  - ASTHENIA [None]
  - CONDITION AGGRAVATED [None]
  - CONVULSION [None]
  - DRUG LEVEL DECREASED [None]
  - DRUG TOXICITY [None]
  - POSTICTAL STATE [None]
  - VISUAL ACUITY REDUCED [None]
